FAERS Safety Report 12191228 (Version 1)
Quarter: 2016Q1

REPORT INFORMATION
  Report Type: Spontaneous
  Country: US (occurrence: None)
  Receive Date: 20160317
  Receipt Date: 20160317
  Transmission Date: 20160526
  Serious: No
  Sender: FDA-Public Use
  Company Number: None

PATIENT
  Age: 92 Year
  Sex: Male

DRUGS (7)
  1. FISH OIL [Concomitant]
     Active Substance: FISH OIL
  2. LEVOTHRY [Concomitant]
  3. GLEEVEC [Suspect]
     Active Substance: IMATINIB MESYLATE
     Indication: SOFT TISSUE SARCOMA
     Dosage: 1 TAB DAILY PO
     Route: 048
     Dates: start: 20150814
  4. COMPERAZOLE [Concomitant]
  5. ATENOLOL. [Concomitant]
     Active Substance: ATENOLOL
  6. LISINOPRIL. [Concomitant]
     Active Substance: LISINOPRIL
  7. MULTI VIT [Concomitant]

REACTIONS (1)
  - Malignant neoplasm progression [None]

NARRATIVE: CASE EVENT DATE: 20160310
